FAERS Safety Report 5505353-9 (Version None)
Quarter: 2007Q4

REPORT INFORMATION
  Report Type: 
  Country: None (occurrence: None)
  Receive Date: 20071102
  Receipt Date: 20071023
  Transmission Date: 20080405
  Serious: Yes (Other)
  Sender: FDA-Public Use
  Company Number: GB-ROCHE-526073

PATIENT
  Age: 63 Year
  Sex: Female
  Weight: 112.5 kg

DRUGS (1)
  1. ORLISTAT [Suspect]
     Indication: OBESITY
     Route: 048
     Dates: start: 20070308, end: 20070920

REACTIONS (1)
  - CEREBROVASCULAR ACCIDENT [None]
